FAERS Safety Report 7096011-0 (Version None)
Quarter: 2010Q4

REPORT INFORMATION
  Report Type: 
  Country: None (occurrence: None)
  Receive Date: 20101111
  Receipt Date: 20090504
  Transmission Date: 20110411
  Serious: No
  Sender: FDA-Public Use
  Company Number: US-KINGPHARMUSA00001-K200900535

PATIENT
  Sex: Female

DRUGS (4)
  1. LEVOXYL [Suspect]
     Indication: HYPOTHYROIDISM
     Dosage: 137 MCG, UNK
  2. LEVOXYL [Suspect]
     Dosage: 100 MCG, QD
     Route: 048
  3. TRAMADOL HCL [Suspect]
  4. CALCITRIOL [Concomitant]
     Dosage: UNK

REACTIONS (2)
  - ADVERSE EVENT [None]
  - FEELING ABNORMAL [None]
